FAERS Safety Report 8505894-6 (Version None)
Quarter: 2012Q3

REPORT INFORMATION
  Report Type: 
  Country: None (occurrence: None)
  Receive Date: 20120706
  Receipt Date: 20120706
  Transmission Date: 20120928
  Serious: Yes (Hospitalization)
  Sender: FDA-Public Use
  Company Number: None

PATIENT
  Age: 61 Year
  Sex: Female

DRUGS (8)
  1. VIT D2 [Concomitant]
  2. PRAVASTATIN [Concomitant]
  3. NIASPAN [Suspect]
     Indication: BLOOD CHOLESTEROL
     Dosage: TAKE 1 TABLET AT BEDTIME
     Dates: start: 20120530
  4. NIASPAN [Suspect]
     Indication: HIGH DENSITY LIPOPROTEIN ABNORMAL
     Dosage: TAKE 1 TABLET AT BEDTIME
     Dates: start: 20120530
  5. PANTOPRAZOLE [Concomitant]
  6. PAROXETINE [Concomitant]
  7. ETODOLAC [Concomitant]
  8. SUMATRIPTAN SUCCINATE [Concomitant]

REACTIONS (7)
  - URTICARIA [None]
  - HEAD INJURY [None]
  - DISORIENTATION [None]
  - SYNCOPE [None]
  - DIZZINESS [None]
  - PRURITUS [None]
  - FALL [None]
